FAERS Safety Report 12613058 (Version 1)
Quarter: 2016Q3

REPORT INFORMATION
  Report Type: Spontaneous
  Country: PT (occurrence: PT)
  Receive Date: 20160802
  Receipt Date: 20160802
  Transmission Date: 20161109
  Serious: Yes (Hospitalization, Other)
  Sender: FDA-Public Use
  Company Number: PT-AMGEN-PRTSP2016080470

PATIENT
  Age: 4 Year
  Sex: Female

DRUGS (6)
  1. ENBREL [Suspect]
     Active Substance: ETANERCEPT
     Indication: JUVENILE IDIOPATHIC ARTHRITIS
     Dosage: 10 MG, WEEKLY
     Route: 065
     Dates: start: 201408, end: 201604
  2. METHOTREXATE. [Concomitant]
     Active Substance: METHOTREXATE
     Dosage: 9 MG/M2, WEEKLY
  3. METHOTREXATE. [Concomitant]
     Active Substance: METHOTREXATE
     Dosage: 9 MG/M2, WEEKLY
  4. METHOTREXATE. [Concomitant]
     Active Substance: METHOTREXATE
     Dosage: 9 MG/M2, WEEKLY
  5. METHOTREXATE. [Concomitant]
     Active Substance: METHOTREXATE
     Indication: JUVENILE IDIOPATHIC ARTHRITIS
     Dosage: 15 MG/M2, WEEKLY
     Dates: start: 201212
  6. METHOTREXATE. [Concomitant]
     Active Substance: METHOTREXATE
     Dosage: 9 MG/M2, WEEKLY

REACTIONS (10)
  - Intestinal ulcer [Unknown]
  - Cytomegalovirus colitis [Not Recovered/Not Resolved]
  - Colitis [Unknown]
  - Colitis ulcerative [Unknown]
  - Abnormal faeces [Unknown]
  - Faecal calprotectin increased [Unknown]
  - Haematochezia [Unknown]
  - Diarrhoea [Unknown]
  - Crohn^s disease [Unknown]
  - Antinuclear antibody positive [Unknown]

NARRATIVE: CASE EVENT DATE: 2014
